FAERS Safety Report 20269939 (Version 2)
Quarter: 2022Q1

REPORT INFORMATION
  Report Type: Spontaneous
  Country: CN (occurrence: CN)
  Receive Date: 20220101
  Receipt Date: 20220117
  Transmission Date: 20220423
  Serious: Yes (Other)
  Sender: FDA-Public Use
  Company Number: CN-AMNEAL PHARMACEUTICALS-2021-AMRX-05090

PATIENT
  Age: 70 Year
  Sex: Female
  Weight: 45 kg

DRUGS (1)
  1. ALBENZA [Suspect]
     Active Substance: ALBENDAZOLE
     Indication: Helminthic infection
     Dosage: 0.4 GRAM, 3X/DAY
     Route: 048
     Dates: start: 20211126, end: 20211127

REACTIONS (8)
  - Faeces discoloured [Recovering/Resolving]
  - Abdominal discomfort [Recovered/Resolved]
  - Decreased appetite [Unknown]
  - Asthenia [Unknown]
  - Vomiting [Recovered/Resolved]
  - Diarrhoea [Recovered/Resolved]
  - Dizziness [Recovered/Resolved]
  - Discomfort [Recovered/Resolved]

NARRATIVE: CASE EVENT DATE: 20211127
